FAERS Safety Report 15289398 (Version 1)
Quarter: 2018Q3

REPORT INFORMATION
  Report Type: Spontaneous
  Country: US (occurrence: US)
  Receive Date: 20180817
  Receipt Date: 20180817
  Transmission Date: 20181010
  Serious: No
  Sender: FDA-Public Use
  Company Number: US-BAUSCH-BL-2018-002942

PATIENT
  Sex: Male

DRUGS (2)
  1. TARGRETIN [Suspect]
     Active Substance: BEXAROTENE
     Indication: SKIN LESION
     Route: 061
  2. BEXAROTENE. [Suspect]
     Active Substance: BEXAROTENE
     Indication: SKIN LESION
     Route: 048

REACTIONS (1)
  - Erythema [Not Recovered/Not Resolved]
